FAERS Safety Report 5238466-X (Version None)
Quarter: 2007Q1

REPORT INFORMATION
  Report Type: 
  Country: None (occurrence: None)
  Receive Date: 20070215
  Receipt Date: 20070202
  Transmission Date: 20070707
  Serious: Yes (Hospitalization)
  Sender: FDA-Public Use
  Company Number: DE-ELI_LILLY_AND_COMPANY-DE200702000654

PATIENT
  Sex: Female
  Weight: 72 kg

DRUGS (3)
  1. GEMCITABINE HCL [Suspect]
     Indication: BREAST CANCER
     Dosage: 1800 MG, UNK
     Route: 042
     Dates: start: 20070123
  2. *DOCETAXEL [Suspect]
     Indication: BREAST CANCER
     Dosage: 135 MG, UNK
     Route: 042
     Dates: start: 20070123
  3. DEXAMETHASONE [Concomitant]
     Dosage: 20 MG, UNK
     Route: 042
     Dates: start: 20070123, end: 20070123

REACTIONS (2)
  - HYPERGLYCAEMIA [None]
  - VAGINAL INFECTION [None]
